FAERS Safety Report 11063279 (Version 2)
Quarter: 2015Q2

REPORT INFORMATION
  Report Type: Spontaneous
  Country: FR (occurrence: FR)
  Receive Date: 20150424
  Receipt Date: 20150428
  Transmission Date: 20150821
  Serious: Yes (Disabling)
  Sender: FDA-Public Use
  Company Number: FR-ALLERGAN-1503056US

PATIENT
  Age: 41 Year
  Sex: Female

DRUGS (3)
  1. BOTOX [Suspect]
     Active Substance: ONABOTULINUMTOXINA
     Indication: OCCIPITAL NEURALGIA
  2. BOTOX [Suspect]
     Active Substance: ONABOTULINUMTOXINA
     Indication: MUSCLE CONTRACTURE
     Dosage: 100 UNITS, SINGLE, 3 MONTHS
     Route: 030
     Dates: start: 20110617, end: 20110617
  3. IXPRIM [Concomitant]
     Active Substance: ACETAMINOPHEN\TRAMADOL HYDROCHLORIDE
     Dosage: 3 DF, QD

REACTIONS (3)
  - Muscle atrophy [Unknown]
  - Off label use [Unknown]
  - Muscle contracture [Unknown]
